FAERS Safety Report 21099748 (Version 1)
Quarter: 2022Q3

REPORT INFORMATION
  Report Type: Spontaneous
  Country: GB (occurrence: GB)
  Receive Date: 20220719
  Receipt Date: 20220719
  Transmission Date: 20221026
  Serious: Yes (Other)
  Sender: FDA-Public Use
  Company Number: GB-AstraZeneca-2022A251256

PATIENT
  Age: 65 Year
  Sex: Female

DRUGS (3)
  1. CARBOPLATIN [Suspect]
     Active Substance: CARBOPLATIN
  2. IMFINZI [Suspect]
     Active Substance: DURVALUMAB
     Indication: Small cell lung cancer extensive stage
     Dosage: 1000 MG, CYCLIC
     Route: 042
     Dates: start: 20220120, end: 20220120
  3. ETOPOSIDE [Concomitant]
     Active Substance: ETOPOSIDE

REACTIONS (1)
  - Pneumonitis [Unknown]
